FAERS Safety Report 6331541-8 (Version None)
Quarter: 2009Q3

REPORT INFORMATION
  Report Type: 
  Country: None (occurrence: None)
  Receive Date: 20090827
  Receipt Date: 20090813
  Transmission Date: 20100115
  Serious: Yes (Other)
  Sender: FDA-Public Use
  Company Number: US-ROCHE-625007

PATIENT
  Sex: Male

DRUGS (6)
  1. PEG-INTERFERON A-2A (RO 25-8310) [Suspect]
     Indication: HEPATITIS C
     Dosage: FORM: PRE FILLED SYRINGE; PATIENT IN WEEK 37
     Route: 065
     Dates: start: 20081003
  2. RIBAVIRIN (NON-ROCHE) [Suspect]
     Indication: HEPATITIS C
     Dosage: DIVIDED DOSES;
     Route: 065
     Dates: start: 20081003
  3. RIBAVIRIN (NON-ROCHE) [Suspect]
     Dosage: DIVIDED DOSES; PATIENT IN WEEK 37
     Route: 065
  4. LEXAPRO [Concomitant]
     Indication: DEPRESSION
  5. PROCRIT [Concomitant]
  6. PROCRIT [Concomitant]
     Dosage: DOSE INCREASED

REACTIONS (5)
  - DYSPNOEA [None]
  - EPICONDYLITIS [None]
  - FATIGUE [None]
  - INSOMNIA [None]
  - THROMBOSIS [None]
